FAERS Safety Report 13454820 (Version 2)
Quarter: 2017Q2

REPORT INFORMATION
  Report Type: Spontaneous
  Country: US (occurrence: US)
  Receive Date: 20170418
  Receipt Date: 20170623
  Transmission Date: 20170830
  Serious: Yes (Hospitalization, Other)
  Sender: FDA-Public Use
  Company Number: US-ASTRAZENECA-2017SE39334

PATIENT
  Age: 40 Year
  Sex: Female
  Weight: 104.3 kg

DRUGS (12)
  1. SEROQUEL [Suspect]
     Active Substance: QUETIAPINE FUMARATE
     Indication: BIPOLAR DISORDER
     Dosage: SEROQUEL XR, 50 MG DAILY
     Route: 048
  2. SEROQUEL [Suspect]
     Active Substance: QUETIAPINE FUMARATE
     Indication: SCHIZOAFFECTIVE DISORDER
     Dosage: SEROQUEL XR, 50 MG DAILY
     Route: 048
  3. SEROQUEL [Suspect]
     Active Substance: QUETIAPINE FUMARATE
     Indication: BIPOLAR DISORDER
     Dosage: SEROQUEL XR, 100 MG DAILY
     Route: 048
     Dates: start: 2014
  4. BABY ASPIRIN [Concomitant]
     Active Substance: ASPIRIN
     Route: 065
  5. SEROQUEL [Suspect]
     Active Substance: QUETIAPINE FUMARATE
     Indication: BIPOLAR DISORDER
     Route: 048
     Dates: start: 2001, end: 2014
  6. SEROQUEL [Suspect]
     Active Substance: QUETIAPINE FUMARATE
     Indication: SCHIZOAFFECTIVE DISORDER
     Route: 048
     Dates: start: 2001, end: 2014
  7. AMITRIPTYLINE [Concomitant]
     Active Substance: AMITRIPTYLINE
     Route: 065
  8. FUROSEMIDE. [Concomitant]
     Active Substance: FUROSEMIDE
     Route: 065
  9. SEROQUEL [Suspect]
     Active Substance: QUETIAPINE FUMARATE
     Indication: SCHIZOAFFECTIVE DISORDER
     Dosage: SEROQUEL XR, 100 MG DAILY
     Route: 048
     Dates: start: 2014
  10. VERAPAMIL [Concomitant]
     Active Substance: VERAPAMIL HYDROCHLORIDE
     Dosage: TWO TIMES A DAY
     Route: 065
  11. LISINOPRIL. [Suspect]
     Active Substance: LISINOPRIL
     Route: 048
  12. ALLOPURINOL. [Concomitant]
     Active Substance: ALLOPURINOL
     Route: 065

REACTIONS (18)
  - Renal cancer [Unknown]
  - Diabetic coma [Unknown]
  - Road traffic accident [Unknown]
  - Rib fracture [Unknown]
  - Traumatic liver injury [Unknown]
  - Bipolar disorder [Unknown]
  - Diplegia [Recovered/Resolved]
  - Renal failure [Unknown]
  - Condition aggravated [Unknown]
  - Splenic rupture [Unknown]
  - Deafness unilateral [Unknown]
  - Visual impairment [Unknown]
  - Meningioma [Unknown]
  - Schizoaffective disorder [Unknown]
  - Sternal fracture [Recovered/Resolved]
  - Malignant neoplasm progression [Unknown]
  - Glomerular filtration rate abnormal [Unknown]
  - Blood urea increased [Unknown]

NARRATIVE: CASE EVENT DATE: 2001
